FAERS Safety Report 7492640-0 (Version None)
Quarter: 2011Q2

REPORT INFORMATION
  Report Type: 
  Country: None (occurrence: None)
  Receive Date: 20110519
  Receipt Date: 20091122
  Transmission Date: 20111010
  Serious: Yes (Death, Other)
  Sender: FDA-Public Use
  Company Number: US-BAYER-200940308NA

PATIENT
  Age: 69 Year
  Sex: Female
  Weight: 77 kg

DRUGS (17)
  1. ALDACTONE [Concomitant]
     Dosage: 25 MG, BID
     Route: 048
  2. FEMARA [Concomitant]
     Dosage: 2.5 MG, QD
     Route: 048
  3. CENTRUM [Concomitant]
     Route: 048
  4. BUMEX [Concomitant]
     Dosage: 4 MG, TID
     Route: 048
  5. ISOSORBIDE MONONITRATE [Concomitant]
     Dosage: 60 MG, QD
     Route: 048
  6. CALCIUM CARBONATE [Concomitant]
     Route: 048
  7. MAGNESIUM GLUCONATE [Concomitant]
     Dosage: 500 MG, BID
     Route: 048
  8. POTASSIUM [POTASSIUM CHLORIDE] [Concomitant]
     Dosage: 160 MEQ, QD
     Route: 048
  9. TRASYLOL [Suspect]
     Indication: HEART VALVE OPERATION
  10. HYDROCORTISONE [Concomitant]
     Dosage: 2.5 MG, TID
     Route: 061
  11. FERROUS SULFATE TAB [Concomitant]
     Dosage: 325 MG, QD
     Route: 048
  12. ADVAIR DISKUS 100/50 [Concomitant]
     Dosage: 100/50 ORAL INHALANT BID
     Route: 055
  13. BUMEX [Concomitant]
     Dosage: 40 MG, QD
     Route: 042
  14. TRASYLOL [Suspect]
     Indication: CARDIAC OPERATION
     Route: 042
     Dates: start: 20030301
  15. ZAROXOLYN [Concomitant]
     Dosage: 10 MG, BID
     Route: 048
  16. LEVOTHYROXINE SODIUM [Concomitant]
     Dosage: 0.112 MG, UNK
     Route: 048
  17. ACETYLSALICYLIC ACID SRT [Concomitant]
     Dosage: 81 MG, QD
     Route: 048

REACTIONS (13)
  - FEAR [None]
  - PAIN [None]
  - RENAL FAILURE [None]
  - UNEVALUABLE EVENT [None]
  - INJURY [None]
  - RENAL INJURY [None]
  - EMOTIONAL DISTRESS [None]
  - DEATH [None]
  - ANXIETY [None]
  - MULTI-ORGAN FAILURE [None]
  - STRESS [None]
  - RENAL IMPAIRMENT [None]
  - ANHEDONIA [None]
